FAERS Safety Report 19309981 (Version 5)
Quarter: 2022Q3

REPORT INFORMATION
  Report Type: Spontaneous
  Country: GR (occurrence: GR)
  Receive Date: 20210526
  Receipt Date: 20220720
  Transmission Date: 20221026
  Serious: Yes (Life-Threatening, Hospitalization, Disabling, Other)
  Sender: FDA-Public Use
  Company Number: GR-SA-SAC20210521001307

PATIENT
  Age: 35 Year
  Sex: Female
  Weight: 65 kg

DRUGS (7)
  1. LEMTRADA [Suspect]
     Active Substance: ALEMTUZUMAB
     Indication: Multiple sclerosis
     Dosage: 12 MG
     Route: 042
     Dates: start: 20200929, end: 20201003
  2. SOLU-MEDROL [Concomitant]
     Active Substance: METHYLPREDNISOLONE SODIUM SUCCINATE
     Indication: Multiple sclerosis
     Dosage: 1 G
     Route: 042
     Dates: start: 20200929, end: 20201003
  3. CYCLOSPORINE [Concomitant]
     Active Substance: CYCLOSPORINE
  4. CHOLECALCIFEROL [Concomitant]
     Active Substance: CHOLECALCIFEROL
     Dosage: UNK, ROUTE PER OS, 25.000 UNITS/ WK
     Dates: start: 20170808
  5. ONDANSETRON [Concomitant]
     Active Substance: ONDANSETRON
     Dosage: 8 MG
     Route: 042
     Dates: start: 20200929, end: 20201003
  6. OMEPRAZOLE [Concomitant]
     Active Substance: OMEPRAZOLE
     Dosage: 40 MG, ROUTE PER OS
     Dates: start: 20200929, end: 20201003
  7. CORTISONE ACETATE [Concomitant]
     Active Substance: CORTISONE ACETATE

REACTIONS (11)
  - Haemophagocytic lymphohistiocytosis [Recovered/Resolved]
  - Hepatomegaly [Unknown]
  - Splenomegaly [Unknown]
  - Hypertriglyceridaemia [Unknown]
  - Serum ferritin increased [Recovering/Resolving]
  - Hepatic enzyme increased [Recovering/Resolving]
  - Pyrexia [Recovered/Resolved]
  - Thrombocytopenia [Unknown]
  - Multiple sclerosis [Unknown]
  - Motor dysfunction [Not Recovered/Not Resolved]
  - Asthenia [Not Recovered/Not Resolved]

NARRATIVE: CASE EVENT DATE: 20210427
